FAERS Safety Report 10313930 (Version 1)
Quarter: 2014Q3

REPORT INFORMATION
  Report Type: Spontaneous
  Country: IT (occurrence: None)
  Receive Date: 20140716
  Receipt Date: 20140716
  Transmission Date: 20150326
  Serious: Yes (Other)
  Sender: FDA-Public Use
  Company Number: 2428901

PATIENT
  Age: 67 Year
  Sex: Male

DRUGS (1)
  1. OXALIPLATIN. [Suspect]
     Active Substance: OXALIPLATIN
     Indication: ADENOCARCINOMA OF COLON
     Dosage: 110 MG, CYCLICAL, INTRAVENOUS (NOT OTHERWISE SPECIFIED)
     Route: 042
     Dates: start: 20140404

REACTIONS (5)
  - Oxygen saturation decreased [None]
  - Flushing [None]
  - Hyperhidrosis [None]
  - Idiosyncratic drug reaction [None]
  - Feeling hot [None]

NARRATIVE: CASE EVENT DATE: 20140428
